FAERS Safety Report 5276790-5 (Version None)
Quarter: 2007Q1

REPORT INFORMATION
  Report Type: 
  Country: None (occurrence: None)
  Receive Date: 20070321
  Receipt Date: 20061207
  Transmission Date: 20070707
  Serious: Yes (Other)
  Sender: FDA-Public Use
  Company Number: 237869K06USA

PATIENT
  Age: 56 Year
  Sex: Female

DRUGS (7)
  1. REBIF [Suspect]
     Indication: MULTIPLE SCLEROSIS
     Dosage: 44 MCG, 3 IN 1 WEEKS, SUBCUTANEOUS
     Route: 058
     Dates: start: 20060418
  2. DIAZEPAM [Concomitant]
  3. TIZANIDINE HCL [Concomitant]
  4. NORVASC [Concomitant]
  5. ZOCOR (ZOCOR CARDIO ASS) [Concomitant]
  6. SINGULAIR (MONTELUKAST /01362601/) [Concomitant]
  7. STEROIDS (CORTICOSTEROIDS) [Concomitant]

REACTIONS (2)
  - GLUCOSE TOLERANCE IMPAIRED [None]
  - GLYCOSYLATED HAEMOGLOBIN INCREASED [None]
